FAERS Safety Report 7815781-4 (Version None)
Quarter: 2011Q4

REPORT INFORMATION
  Report Type: 
  Country: None (occurrence: None)
  Receive Date: 20111014
  Receipt Date: 20111010
  Transmission Date: 20120403
  Serious: Yes (Disabling)
  Sender: FDA-Public Use
  Company Number: GB-BAYER-2011-098483

PATIENT
  Sex: Female

DRUGS (2)
  1. BETASERON [Suspect]
     Indication: MULTIPLE SCLEROSIS
     Dosage: UNK UNK, QOD
     Route: 058
     Dates: start: 20060101
  2. ACETAMINOPHEN [Concomitant]

REACTIONS (3)
  - MOBILITY DECREASED [None]
  - INFLUENZA LIKE ILLNESS [None]
  - INJECTION SITE RASH [None]
